FAERS Safety Report 12279885 (Version 5)
Quarter: 2017Q1

REPORT INFORMATION
  Report Type: Spontaneous
  Country: US (occurrence: US)
  Receive Date: 20160418
  Receipt Date: 20170210
  Transmission Date: 20170428
  Serious: Yes (Other)
  Sender: FDA-Public Use
  Company Number: US-TEVA-644388USA

PATIENT
  Age: 35 Year
  Sex: Female

DRUGS (1)
  1. ZECUITY [Suspect]
     Active Substance: SUMATRIPTAN SUCCINATE
     Indication: MIGRAINE
     Route: 062
     Dates: start: 201603, end: 201603

REACTIONS (10)
  - Throat tightness [Recovered/Resolved]
  - Application site pruritus [Unknown]
  - Application site rash [Unknown]
  - Application site swelling [Recovered/Resolved with Sequelae]
  - Dyspnoea [Recovered/Resolved]
  - Application site pain [Recovered/Resolved with Sequelae]
  - Influenza [Unknown]
  - Product leakage [Unknown]
  - Wrong technique in product usage process [Unknown]
  - Application site erythema [Recovered/Resolved with Sequelae]

NARRATIVE: CASE EVENT DATE: 201603
